FAERS Safety Report 21853059 (Version 1)
Quarter: 2023Q1

REPORT INFORMATION
  Report Type: Report from Study
  Country: GB (occurrence: GB)
  Receive Date: 20230112
  Receipt Date: 20230112
  Transmission Date: 20230417
  Serious: Yes (Hospitalization)
  Sender: FDA-Public Use
  Company Number: GB-002147023-NVSC2022GB303074

PATIENT
  Sex: Female

DRUGS (1)
  1. KISQALI [Suspect]
     Active Substance: RIBOCICLIB
     Indication: Product used for unknown indication
     Dosage: UNK (1ST LINE WITH AI)
     Route: 065
     Dates: start: 202205

REACTIONS (2)
  - Joint dislocation [Unknown]
  - Pain [Unknown]

NARRATIVE: CASE EVENT DATE: 20230103
